FAERS Safety Report 9851831 (Version 2)
Quarter: 2014Q1

REPORT INFORMATION
  Report Type: Spontaneous
  Country: US (occurrence: None)
  Receive Date: 20140127
  Receipt Date: 20140210
  Transmission Date: 20141002
  Serious: Yes (Other)
  Sender: FDA-Public Use
  Company Number: 2014P1000421

PATIENT
  Age: 17 Year
  Sex: Male

DRUGS (1)
  1. MYORISAN 40 MG [Suspect]
     Indication: ACNE CYSTIC
     Route: 048
     Dates: start: 20131122, end: 20131230

REACTIONS (2)
  - Depression [None]
  - Depressed mood [None]
